FAERS Safety Report 5608337-5 (Version None)
Quarter: 2008Q1

REPORT INFORMATION
  Report Type: 
  Country: None (occurrence: None)
  Receive Date: 20080130
  Receipt Date: 20080123
  Transmission Date: 20080703
  Serious: Yes (Congenital Anomaly)
  Sender: FDA-Public Use
  Company Number: SE-BOEHRINGER INGELHEIM GMBH, GERMANY-2008-DE-00438GD

PATIENT

DRUGS (4)
  1. BUDESONIDE [Suspect]
     Route: 064
  2. MIDAZOLAM HYDROCHLORIDE [Suspect]
     Route: 064
  3. GLUTAMIC ACID HCL CAP [Suspect]
     Route: 064
  4. VITAMIN B-12 [Suspect]
     Route: 064

REACTIONS (2)
  - DRUG EXPOSURE DURING PREGNANCY [None]
  - ILEAL ATRESIA [None]
